FAERS Safety Report 13610408 (Version 1)
Quarter: 2017Q2

REPORT INFORMATION
  Report Type: Spontaneous
  Country: US (occurrence: US)
  Receive Date: 20170602
  Receipt Date: 20170602
  Transmission Date: 20170830
  Serious: No
  Sender: FDA-Public Use
  Company Number: None

PATIENT
  Age: 68 Year
  Sex: Female

DRUGS (9)
  1. SUL [Concomitant]
  2. ZOLPIDEM [Concomitant]
     Active Substance: ZOLPIDEM\ZOLPIDEM TARTRATE
  3. OCALIVA [Suspect]
     Active Substance: OBETICHOLIC ACID
     Indication: BILIARY CIRRHOSIS
     Route: 048
     Dates: start: 20170510
  4. URSODIOL. [Concomitant]
     Active Substance: URSODIOL
  5. OMEPRAZOLE. [Concomitant]
     Active Substance: OMEPRAZOLE
  6. CALCIUM [Concomitant]
     Active Substance: CALCIUM
  7. CEPHALEXIN. [Concomitant]
     Active Substance: CEPHALEXIN
  8. MULTIVITAMIN [Concomitant]
     Active Substance: VITAMINS
  9. ZINC. [Concomitant]
     Active Substance: ZINC

REACTIONS (3)
  - Pruritus [None]
  - Headache [None]
  - Abdominal pain upper [None]

NARRATIVE: CASE EVENT DATE: 20170510
